FAERS Safety Report 4798139-4 (Version None)
Quarter: 2005Q4

REPORT INFORMATION
  Report Type: 
  Country: None (occurrence: None)
  Receive Date: 20051011
  Receipt Date: 20050928
  Transmission Date: 20060501
  Serious: Yes (Hospitalization)
  Sender: FDA-Public Use
  Company Number: 2005PV000808

PATIENT
  Age: 56 Year
  Sex: Female
  Weight: 111.1313 kg

DRUGS (6)
  1. BYETTA [Suspect]
     Indication: DIABETES MELLITUS NON-INSULIN-DEPENDENT
     Dosage: SEE IMAGE
     Route: 058
     Dates: start: 20050729, end: 20050801
  2. BYETTA [Suspect]
     Indication: DIABETES MELLITUS NON-INSULIN-DEPENDENT
     Dosage: SEE IMAGE
     Route: 058
     Dates: start: 20050801, end: 20050801
  3. BYETTA [Suspect]
     Indication: DIABETES MELLITUS NON-INSULIN-DEPENDENT
     Dosage: SEE IMAGE
     Route: 058
     Dates: start: 20050802, end: 20050802
  4. BYETTA [Suspect]
     Indication: DIABETES MELLITUS NON-INSULIN-DEPENDENT
     Dosage: SEE IMAGE
     Route: 058
     Dates: start: 20050919, end: 20050923
  5. NOVOLOG0/30 [Concomitant]
  6. METFORIMIN [Concomitant]

REACTIONS (13)
  - ABDOMINAL ABSCESS [None]
  - BLOOD GLUCOSE INCREASED [None]
  - DECREASED APPETITE [None]
  - DRUG INEFFECTIVE [None]
  - HERNIA REPAIR [None]
  - INCISION SITE COMPLICATION [None]
  - INCORRECT DOSE ADMINISTERED [None]
  - MALAISE [None]
  - POST PROCEDURAL COMPLICATION [None]
  - SELF-MEDICATION [None]
  - STAPHYLOCOCCAL INFECTION [None]
  - VOMITING [None]
  - WOUND INFECTION [None]
